FAERS Safety Report 4808516-0 (Version None)
Quarter: 2005Q4

REPORT INFORMATION
  Report Type: 
  Country: None (occurrence: None)
  Receive Date: 20051021
  Receipt Date: 20030819
  Transmission Date: 20060501
  Serious: No
  Sender: FDA-Public Use
  Company Number: DE_030811870

PATIENT
  Age: 39 Year
  Sex: Female

DRUGS (6)
  1. ZYPREXA [Suspect]
     Indication: DEPRESSION
     Dosage: 7.5 MG/AT BEDTIME
     Dates: start: 20030101, end: 20030101
  2. ZYPREXA [Suspect]
     Indication: DISEASE RECURRENCE
     Dosage: 7.5 MG/AT BEDTIME
     Dates: start: 20030101, end: 20030101
  3. PANTOPRAZOLE SODIUM [Concomitant]
  4. LORAZEPAM [Concomitant]
  5. ERGOTAMINE [Concomitant]
  6. MULTIBIONTA FORTE [Concomitant]

REACTIONS (4)
  - ANAEMIA [None]
  - BONE MARROW TOXICITY [None]
  - DRUG INTERACTION [None]
  - LEUKOPENIA [None]
